FAERS Safety Report 8252657-5 (Version None)
Quarter: 2012Q2

REPORT INFORMATION
  Report Type: 
  Country: None (occurrence: None)
  Receive Date: 20120402
  Receipt Date: 20110805
  Transmission Date: 20120825
  Serious: No
  Sender: FDA-Public Use
  Company Number: US-ABBOTT-11P-163-0844599-00

PATIENT
  Sex: Male
  Weight: 74.91 kg

DRUGS (5)
  1. TRANSENE [Concomitant]
     Indication: PRODUCT USED FOR UNKNOWN INDICATION
  2. ANDROGEL [Suspect]
     Indication: BLOOD TESTOSTERONE DECREASED
     Dates: start: 20110801
  3. BUSPAR [Concomitant]
     Indication: ANXIETY
  4. FORMOTEROL/MOMETASONE NEB [Concomitant]
     Indication: ASTHMA
  5. WELLBUTRIN [Concomitant]
     Indication: DEPRESSION

REACTIONS (1)
  - HEART RATE INCREASED [None]
